FAERS Safety Report 4408511-X (Version None)
Quarter: 2004Q3

REPORT INFORMATION
  Report Type: 
  Country: None (occurrence: None)
  Receive Date: 20040726
  Receipt Date: 20040726
  Transmission Date: 20050211
  Serious: Yes (Death)
  Sender: FDA-Public Use
  Company Number: None

PATIENT
  Age: 72 Year
  Sex: Male
  Weight: 95.9358 kg

DRUGS (1)
  1. XELODA [Suspect]

REACTIONS (2)
  - DISEASE PROGRESSION [None]
  - REFUSAL OF TREATMENT BY PATIENT [None]
